FAERS Safety Report 6849816-2 (Version None)
Quarter: 2010Q3

REPORT INFORMATION
  Report Type: 
  Country: None (occurrence: None)
  Receive Date: 20100716
  Receipt Date: 20071224
  Transmission Date: 20110219
  Serious: No
  Sender: FDA-Public Use
  Company Number: US-PFIZER INC-2007084619

PATIENT
  Sex: Female
  Weight: 50 kg

DRUGS (10)
  1. CHANTIX [Suspect]
     Indication: SMOKING CESSATION THERAPY
     Dates: start: 20070801
  2. ALL OTHER THERAPEUTIC PRODUCTS [Suspect]
     Dates: end: 20070901
  3. CRESTOR [Concomitant]
  4. VALSARTAN [Concomitant]
  5. ZYRTEC [Concomitant]
  6. FOLIC ACID [Concomitant]
  7. FOSAMAX [Concomitant]
  8. VITAMINS [Concomitant]
  9. VITAMIN D [Concomitant]
  10. PROTONIX [Concomitant]

REACTIONS (4)
  - INAPPROPRIATE SCHEDULE OF DRUG ADMINISTRATION [None]
  - NAUSEA [None]
  - VOMITING [None]
  - WEIGHT INCREASED [None]
